FAERS Safety Report 9005166 (Version 1)
Quarter: 2013Q1

REPORT INFORMATION
  Report Type: Spontaneous
  Country: US (occurrence: None)
  Receive Date: 20130107
  Receipt Date: 20130107
  Transmission Date: 20140127
  Serious: No
  Sender: FDA-Public Use
  Company Number: None

PATIENT
  Sex: Female
  Weight: 97.7 kg

DRUGS (2)
  1. SINGULAIR [Suspect]
     Dosage: 10 MG 1QD ORAL
     Route: 048
     Dates: start: 2009
  2. SINGULAIR [Suspect]
     Indication: CHRONIC OBSTRUCTIVE PULMONARY DISEASE
     Dosage: 10 MG 1QD ORAL
     Route: 048
     Dates: start: 2009

REACTIONS (1)
  - No adverse event [None]
